FAERS Safety Report 15668841 (Version 1)
Quarter: 2018Q4

REPORT INFORMATION
  Report Type: Spontaneous
  Country: GB (occurrence: GB)
  Receive Date: 20181129
  Receipt Date: 20181129
  Transmission Date: 20190205
  Serious: Yes (Other)
  Sender: FDA-Public Use
  Company Number: GB-IPCA LABORATORIES LIMITED-IPC-2018-GB-002340

PATIENT

DRUGS (2)
  1. MEPACRINE [Interacting]
     Active Substance: QUINACRINE
     Indication: CUTANEOUS LUPUS ERYTHEMATOSUS
     Dosage: UNK
     Route: 065
  2. CHLOROQUINE. [Suspect]
     Active Substance: CHLOROQUINE
     Indication: CUTANEOUS LUPUS ERYTHEMATOSUS
     Dosage: UNK
     Route: 065

REACTIONS (4)
  - Myopathy [Recovered/Resolved]
  - Drug interaction [Unknown]
  - Toxicity to various agents [Unknown]
  - Demyelinating polyneuropathy [Recovered/Resolved]
